FAERS Safety Report 22391200 (Version 3)
Quarter: 2023Q2

REPORT INFORMATION
  Report Type: Spontaneous
  Country: CZ (occurrence: CZ)
  Receive Date: 20230601
  Receipt Date: 20230617
  Transmission Date: 20230722
  Serious: Yes (Death, Hospitalization, Other)
  Sender: FDA-Public Use
  Company Number: CZ-TEVA-2023-CZ-2887745

PATIENT

DRUGS (4)
  1. BORTEZOMIB [Suspect]
     Active Substance: BORTEZOMIB
     Indication: Plasma cell myeloma
     Dosage: BDD REGIMEN (BORTEZIMID. DOXORUBICIN, DEXAMETHASONE) FIRST CYCLE
     Route: 065
     Dates: start: 2023
  2. DOXORUBICIN [Suspect]
     Active Substance: DOXORUBICIN
     Indication: Plasma cell myeloma
     Dosage: BDD REGIMEN (BORTEZIMID. DOXORUBICIN, DEXAMETHASONE) FIRST CYCLE
     Route: 065
     Dates: start: 2023
  3. DEXAMETHASONE [Suspect]
     Active Substance: DEXAMETHASONE
     Indication: Plasma cell myeloma
     Dosage: BDD REGIMEN (BORTEZIMID. DOXORUBICIN, DEXAMETHASONE) FIRST CYCLE
     Route: 065
     Dates: start: 2023
  4. PRESTARIUM COMBI [Concomitant]
     Indication: Product used for unknown indication
     Route: 065

REACTIONS (5)
  - Haematotoxicity [Fatal]
  - Disease progression [Fatal]
  - Malignant neoplasm progression [Fatal]
  - Urinary tract infection [Fatal]
  - Plasma cell myeloma [Unknown]

NARRATIVE: CASE EVENT DATE: 20230101
